FAERS Safety Report 8148658 (Version 3)
Quarter: 2013Q2

REPORT INFORMATION
  Report Type: Spontaneous
  Country: US (occurrence: US)
  Receive Date: 20110922
  Receipt Date: 20130410
  Transmission Date: 20140414
  Serious: Yes (Other)
  Sender: FDA-Public Use
  Company Number: US-ASTRAZENECA-2011SE12688

PATIENT
  Age: 46 Year
  Sex: Male
  Weight: 98.9 kg

DRUGS (27)
  1. SEROQUEL [Suspect]
     Dosage: TAKE ONE HALF TABLET BY MOUTH AT BEDTIME FOR 7 DAYS THEN TAKE ONE TABLET AT BEDTIME
     Route: 048
     Dates: start: 20040312
  2. SEROQUEL [Suspect]
     Dosage: 200 MG IN MORNING AND 300 MG AT NIGHT
     Route: 048
     Dates: start: 20050506
  3. SEROQUEL [Suspect]
     Dosage: 200 MG TAKE ONE TABLET BY MOUTH EVERY MORNING AND TAKE ONE AND ONE-HALF TABLETS AT BEDTIME
     Route: 048
     Dates: start: 200603
  4. SEROQUEL [Suspect]
     Route: 048
     Dates: start: 20100803
  5. BENZTROPINE MESYLATE [Concomitant]
     Route: 048
     Dates: start: 20040312
  6. BENZTROPINE MESYLATE [Concomitant]
     Route: 048
     Dates: start: 20060324
  7. TRAZODONE HCL [Concomitant]
     Indication: SLEEP DISORDER
     Route: 048
     Dates: start: 20040312
  8. BUPROPION HCL [Concomitant]
     Route: 048
     Dates: start: 19991027
  9. BUPROPION HCL [Concomitant]
     Route: 048
     Dates: start: 19991211
  10. HALDOL D [Concomitant]
     Dates: end: 20041117
  11. AMANTADINE HCL [Concomitant]
     Route: 048
     Dates: start: 20111214
  12. DILTIAZEM [Concomitant]
     Route: 048
     Dates: start: 20100803
  13. GABAPENTIN [Concomitant]
     Route: 048
     Dates: start: 20100803
  14. GABAPENTIN [Concomitant]
     Route: 048
     Dates: start: 20111214
  15. MULTIVITAMIN/MINERALS [Concomitant]
     Route: 048
     Dates: start: 20100803
  16. OMEPRAZOLE [Concomitant]
     Route: 048
     Dates: start: 20111214
  17. ROSUVASTATIN CA [Concomitant]
     Indication: BLOOD CHOLESTEROL ABNORMAL
     Route: 048
     Dates: start: 20111214
  18. WARFARIN NA [Concomitant]
     Indication: DEEP VEIN THROMBOSIS
     Dosage: TAKE ONE AND ONE HALF TABLET EVERY EVENING FOR 3 DAYS, TAKE ONE TABLET EVERY EVENING FOR 4 DAYS
     Route: 048
     Dates: start: 20100803
  19. ZIPRASIDONE HCL [Concomitant]
     Route: 048
     Dates: start: 20100803
  20. CITALOPRAM HYDROBROMIDE [Concomitant]
     Route: 048
     Dates: start: 20100803
  21. DOCUSATE SODIUM [Concomitant]
     Route: 048
     Dates: start: 20100803
  22. FISH OIL [Concomitant]
     Route: 048
     Dates: start: 20100803
  23. SIMVASTATIN [Concomitant]
     Indication: BLOOD CHOLESTEROL ABNORMAL
     Route: 048
     Dates: start: 20100803
  24. BISACODYL [Concomitant]
     Dosage: 5 MG TAKE FOUR TABLETS BY MOUTH 5 PM TAKE 3 TABLETS AT 6 PM NIGHT BEFORE PROCEDURE
     Dates: start: 200603
  25. IBUPROFEN [Concomitant]
     Dates: start: 200603
  26. TRIHEXYPHENIDYL HCL [Concomitant]
     Route: 048
     Dates: start: 20060505, end: 20070728
  27. RISPERIDONE [Concomitant]
     Route: 048
     Dates: start: 20060727, end: 20070728

REACTIONS (8)
  - Pancreatitis [Unknown]
  - Diabetic coma [Unknown]
  - Diabetic neuropathy [Unknown]
  - Type 2 diabetes mellitus [Unknown]
  - Type 1 diabetes mellitus [Unknown]
  - Fasciitis [Unknown]
  - Diabetic foot [Unknown]
  - Accommodation disorder [Unknown]
